FAERS Safety Report 24827041 (Version 1)
Quarter: 2025Q1

REPORT INFORMATION
  Report Type: Report from Study
  Country: US (occurrence: US)
  Receive Date: 20250109
  Receipt Date: 20250109
  Transmission Date: 20250409
  Serious: Yes (Death)
  Sender: ABBVIE
  Company Number: US-ABBVIE-6076340

PATIENT
  Age: 88 Year
  Sex: Female

DRUGS (1)
  1. VENCLEXTA [Suspect]
     Active Substance: VENETOCLAX
     Indication: Chronic lymphocytic leukaemia
     Dosage: TAKE 3 TABLETS, 300 MG TOTAL BY MOUTH 1 TIME A DAY, STRENGTH 100 MG
     Route: 048

REACTIONS (1)
  - Death [Fatal]
